FAERS Safety Report 16300347 (Version 17)
Quarter: 2020Q4

REPORT INFORMATION
  Report Type: Report from Study
  Country: DE (occurrence: DE)
  Receive Date: 20190510
  Receipt Date: 20201009
  Transmission Date: 20210113
  Serious: Yes (Death, Hospitalization, Other)
  Sender: FDA-Public Use
  Company Number: DE-SHIRE-DE201910666

PATIENT

DRUGS (43)
  1. TEDUGLUTIDE [Suspect]
     Active Substance: TEDUGLUTIDE
     Indication: SHORT-BOWEL SYNDROME
     Dosage: 0.28 MILLILITER, 1X/DAY:QD
     Route: 058
     Dates: start: 20190122
  2. PARACETAMOL [Concomitant]
     Active Substance: ACETAMINOPHEN
     Indication: PRODUCT USED FOR UNKNOWN INDICATION
  3. SPIRONOLACTONE. [Concomitant]
     Active Substance: SPIRONOLACTONE
     Indication: PRODUCT USED FOR UNKNOWN INDICATION
  4. TEDUGLUTIDE [Suspect]
     Active Substance: TEDUGLUTIDE
     Dosage: 0.3 MILLILITER, 1X/DAY:QD
     Route: 058
     Dates: start: 20190114
  5. FLOLAN [Concomitant]
     Active Substance: EPOPROSTENOL SODIUM
     Indication: PRODUCT USED FOR UNKNOWN INDICATION
  6. FLUCONAZOLE. [Concomitant]
     Active Substance: FLUCONAZOLE
     Indication: CANDIDA INFECTION
  7. CEFOTAXIME [Concomitant]
     Active Substance: CEFOTAXIME SODIUM
     Indication: PYELONEPHRITIS
  8. MEROPENEM. [Concomitant]
     Active Substance: MEROPENEM
     Indication: PRODUCT USED FOR UNKNOWN INDICATION
  9. TEDUGLUTIDE [Suspect]
     Active Substance: TEDUGLUTIDE
     Dosage: 0.3 MILLILITER, 1X/DAY:QD
     Route: 058
     Dates: start: 20190114
  10. NACL [Concomitant]
     Active Substance: SODIUM CHLORIDE
     Indication: PRODUCT USED FOR UNKNOWN INDICATION
  11. ASA [Concomitant]
     Active Substance: ASPIRIN
     Indication: PRODUCT USED FOR UNKNOWN INDICATION
     Dosage: UNK
  12. CASPOFUNGIN [Concomitant]
     Active Substance: CASPOFUNGIN
     Indication: CANDIDA INFECTION
  13. D-FLUORETTEN [CHOLESTEROL;COLECALCIFEROL;SODIUM FLUORIDE] [Concomitant]
     Indication: PRODUCT USED FOR UNKNOWN INDICATION
  14. OTRIVEN [Concomitant]
     Active Substance: XYLOMETAZOLINE HYDROCHLORIDE
     Indication: PRODUCT USED FOR UNKNOWN INDICATION
  15. TEDUGLUTIDE [Suspect]
     Active Substance: TEDUGLUTIDE
     Dosage: 2.5 MILLIGRAM
     Route: 065
     Dates: start: 201902
  16. TEDUGLUTIDE [Suspect]
     Active Substance: TEDUGLUTIDE
     Dosage: 2.5 MILLIGRAM
     Route: 065
     Dates: start: 201902
  17. TPN [AMINO ACIDS NOS;CARBOHYDRATES NOS;MINERALS NOS;VITAMINS NOS] [Concomitant]
     Active Substance: AMINO ACIDS\CARBOHYDRATES\MINERALS\VITAMINS
     Indication: PRODUCT USED FOR UNKNOWN INDICATION
  18. VENOFER [Concomitant]
     Active Substance: IRON SUCROSE
     Indication: PRODUCT USED FOR UNKNOWN INDICATION
  19. INFECTOTRIMET [Concomitant]
     Indication: PYELONEPHRITIS
  20. TEDUGLUTIDE [Suspect]
     Active Substance: TEDUGLUTIDE
     Indication: SHORT-BOWEL SYNDROME
     Dosage: 0.28 MILLILITER, 1X/DAY:QD
     Route: 058
     Dates: start: 20190122
  21. TEDUGLUTIDE [Suspect]
     Active Substance: TEDUGLUTIDE
     Dosage: 2.5 MILLIGRAM
     Route: 065
     Dates: start: 201902
  22. HYDROCORT [HYDROCORTISONE ACETATE] [Concomitant]
     Indication: PRODUCT USED FOR UNKNOWN INDICATION
     Dosage: UNK
  23. HEPARIN [Concomitant]
     Active Substance: HEPARIN SODIUM
     Indication: PRODUCT USED FOR UNKNOWN INDICATION
  24. LASIX [Concomitant]
     Active Substance: FUROSEMIDE
     Indication: PRODUCT USED FOR UNKNOWN INDICATION
  25. REFOBACIN [Concomitant]
     Active Substance: GENTAMICIN SULFATE
     Indication: PRODUCT USED FOR UNKNOWN INDICATION
  26. VANCOMYCIN [Concomitant]
     Active Substance: VANCOMYCIN
     Indication: PRODUCT USED FOR UNKNOWN INDICATION
  27. TEDUGLUTIDE [Suspect]
     Active Substance: TEDUGLUTIDE
     Indication: SHORT-BOWEL SYNDROME
     Dosage: 0.28 MILLILITER, 1X/DAY:QD
     Route: 058
     Dates: start: 20190122
  28. TEDUGLUTIDE [Suspect]
     Active Substance: TEDUGLUTIDE
     Dosage: 2.5 MILLIGRAM
     Route: 065
     Dates: start: 201902
  29. OMEPRAZOLE. [Concomitant]
     Active Substance: OMEPRAZOLE
     Indication: PRODUCT USED FOR UNKNOWN INDICATION
     Dosage: UNK
  30. METAMIZOLE [Concomitant]
     Active Substance: METAMIZOLE
     Indication: PRODUCT USED FOR UNKNOWN INDICATION
     Dosage: UNK
  31. VITAMIN K [Concomitant]
     Active Substance: PHYTONADIONE
     Indication: PRODUCT USED FOR UNKNOWN INDICATION
  32. AMPICILLIN [Concomitant]
     Active Substance: AMPICILLIN
     Indication: PRODUCT USED FOR UNKNOWN INDICATION
  33. DIAZEPAM. [Concomitant]
     Active Substance: DIAZEPAM
     Indication: FEBRILE CONVULSION
  34. TEDUGLUTIDE [Suspect]
     Active Substance: TEDUGLUTIDE
     Indication: SHORT-BOWEL SYNDROME
     Dosage: 0.28 MILLILITER, 1X/DAY:QD
     Route: 058
     Dates: start: 20190122
  35. BEPANTHEN [DEXPANTHENOL;HYALURONATE SODIUM] [Concomitant]
     Indication: PRODUCT USED FOR UNKNOWN INDICATION
  36. IKERVIS [Concomitant]
     Active Substance: CYCLOSPORINE
     Indication: PRODUCT USED FOR UNKNOWN INDICATION
  37. ASPIRIN [ACETYLSALICYLIC ACID] [Concomitant]
     Active Substance: ASPIRIN
     Indication: PRODUCT USED FOR UNKNOWN INDICATION
  38. TEDUGLUTIDE [Suspect]
     Active Substance: TEDUGLUTIDE
     Dosage: 0.3 MILLILITER, 1X/DAY:QD
     Route: 058
     Dates: start: 20190114
  39. TEDUGLUTIDE [Suspect]
     Active Substance: TEDUGLUTIDE
     Dosage: 0.3 MILLILITER, 1X/DAY:QD
     Route: 058
     Dates: start: 20190114
  40. AMBISOME [Concomitant]
     Active Substance: AMPHOTERICIN B
     Indication: CANDIDA INFECTION
     Dosage: UNK
  41. ALDACTONE [Concomitant]
     Active Substance: SPIRONOLACTONE
     Indication: PRODUCT USED FOR UNKNOWN INDICATION
  42. LASIX [Concomitant]
     Active Substance: FUROSEMIDE
     Indication: PRODUCT USED FOR UNKNOWN INDICATION
  43. D-FLUORETTEN [Concomitant]
     Indication: PRODUCT USED FOR UNKNOWN INDICATION

REACTIONS (29)
  - Long QT syndrome [Fatal]
  - Patent ductus arteriosus [Unknown]
  - Brachydactyly [Unknown]
  - Blepharophimosis [Unknown]
  - Gastrointestinal stoma output increased [Unknown]
  - Abdominal pain [Unknown]
  - Hypokalaemia [Unknown]
  - Ophthalmia neonatorum [Unknown]
  - Congenital anomaly [Unknown]
  - Atrial septal defect [Unknown]
  - Electrocardiogram QT prolonged [Unknown]
  - Congenital genital malformation [Unknown]
  - Rib deformity [Unknown]
  - Jaundice neonatal [Unknown]
  - Cardiac failure [Fatal]
  - Ectropion [Unknown]
  - Weight increased [Unknown]
  - Brain injury [Fatal]
  - Electrolyte imbalance [Fatal]
  - Acute hepatic failure [Unknown]
  - Developmental glaucoma [Unknown]
  - Syndactyly [Unknown]
  - Camptodactyly congenital [Unknown]
  - Tachypnoea [Unknown]
  - Respiratory arrest [Fatal]
  - Dyspnoea [Unknown]
  - Enuresis [Unknown]
  - Appetite disorder [Unknown]
  - Headache [Unknown]

NARRATIVE: CASE EVENT DATE: 201905
